FAERS Safety Report 20427150 (Version 4)
Quarter: 2022Q2

REPORT INFORMATION
  Report Type: Report from Study
  Country: US (occurrence: US)
  Receive Date: 20220204
  Receipt Date: 20220511
  Transmission Date: 20220721
  Serious: Yes (Hospitalization)
  Sender: FDA-Public Use
  Company Number: US-EXELIXIS-CABO-21043240

PATIENT
  Age: 82 Year
  Sex: Male

DRUGS (3)
  1. CABOMETYX [Suspect]
     Active Substance: CABOZANTINIB S-MALATE
     Indication: Renal cancer
     Dosage: 40 MG, QD
     Route: 048
     Dates: start: 201908
  2. CABOMETYX [Suspect]
     Active Substance: CABOZANTINIB S-MALATE
     Indication: Metastasis
     Dosage: ALTERNATING 20 MG AND 40 MG DOSE EVERY OTHER DAY
     Route: 048
     Dates: start: 20211124
  3. CABOMETYX [Suspect]
     Active Substance: CABOZANTINIB S-MALATE
     Dosage: 20 MG, QOD
     Route: 048
     Dates: start: 202204

REACTIONS (9)
  - Faeces discoloured [Unknown]
  - Internal haemorrhage [Unknown]
  - Secretion discharge [Unknown]
  - Throat irritation [Unknown]
  - Adverse drug reaction [Unknown]
  - Haematochezia [Unknown]
  - Diarrhoea [Unknown]
  - Pain in extremity [Unknown]
  - Inappropriate schedule of product administration [Unknown]

NARRATIVE: CASE EVENT DATE: 20220401
